FAERS Safety Report 6609583-4 (Version None)
Quarter: 2010Q1

REPORT INFORMATION
  Report Type: 
  Country: None (occurrence: None)
  Receive Date: 20100302
  Receipt Date: 20100219
  Transmission Date: 20100710
  Serious: Yes (Other)
  Sender: FDA-Public Use
  Company Number: US-BAXTER-2010BH003464

PATIENT
  Age: 15 Year
  Sex: Female
  Weight: 49 kg

DRUGS (19)
  1. GAMMAGARD LIQUID [Suspect]
     Indication: POLYARTHRITIS
     Route: 042
     Dates: start: 20091218, end: 20091218
  2. GAMMAGARD LIQUID [Suspect]
     Indication: OFF LABEL USE
     Route: 042
     Dates: start: 20091218, end: 20091218
  3. GAMMAGARD LIQUID [Suspect]
     Route: 042
     Dates: start: 20080101
  4. GAMMAGARD LIQUID [Suspect]
     Route: 042
     Dates: start: 20080101
  5. REMICADE [Suspect]
     Indication: POLYARTHRITIS
     Route: 042
     Dates: start: 20091218, end: 20091218
  6. MULTI-VITAMINS [Concomitant]
  7. CALCIUM [Concomitant]
  8. INFLIXIMAB [Concomitant]
     Route: 042
  9. AZATHIOPRINE [Concomitant]
  10. HYDROXYCHLOROQUINE SULFATE [Concomitant]
  11. CYPROHEPTADINE HYDROCHLORIDE [Concomitant]
  12. MELATONIN [Concomitant]
  13. FLOVENT [Concomitant]
     Route: 055
  14. ALBUTEROL [Concomitant]
     Route: 055
  15. VITAMIN D [Concomitant]
  16. IBUPROFEN [Concomitant]
     Dates: start: 20091218, end: 20091218
  17. TYLENOL-500 [Concomitant]
     Indication: PROPHYLAXIS
     Route: 048
     Dates: start: 20091218, end: 20091218
  18. METHYLPREDNISOLONE [Concomitant]
     Indication: PROPHYLAXIS
     Route: 042
     Dates: start: 20091218, end: 20091218
  19. CLARITIN [Concomitant]
     Indication: PROPHYLAXIS
     Route: 048
     Dates: start: 20091218, end: 20091218

REACTIONS (7)
  - AGITATION [None]
  - ANXIETY [None]
  - FEELING ABNORMAL [None]
  - LACK OF SPONTANEOUS SPEECH [None]
  - MENINGITIS ASEPTIC [None]
  - MENTAL STATUS CHANGES [None]
  - TREMOR [None]
